FAERS Safety Report 17612520 (Version 7)
Quarter: 2020Q3

REPORT INFORMATION
  Report Type: Spontaneous
  Country: CO (occurrence: CO)
  Receive Date: 20200401
  Receipt Date: 20200918
  Transmission Date: 20201102
  Serious: Yes (Life-Threatening)
  Sender: FDA-Public Use
  Company Number: CO-EMD SERONO-9154461

PATIENT
  Age: 53 Year
  Sex: Female

DRUGS (5)
  1. OMEPRAZOLE. [Concomitant]
     Active Substance: OMEPRAZOLE
     Indication: PRODUCT USED FOR UNKNOWN INDICATION
  2. REVOLADE [Suspect]
     Active Substance: ELTROMBOPAG
     Indication: IMMUNE THROMBOCYTOPENIA
     Route: 048
     Dates: start: 202002
  3. REVOLADE [Suspect]
     Active Substance: ELTROMBOPAG
     Route: 048
  4. METFORMIN [Suspect]
     Active Substance: METFORMIN HYDROCHLORIDE
     Indication: PRODUCT USED FOR UNKNOWN INDICATION
     Dosage: UNKNOWN
     Route: 048
  5. METOPROLOL. [Suspect]
     Active Substance: METOPROLOL
     Indication: ARRHYTHMIA
     Dosage: UNKNOWN
     Route: 048

REACTIONS (7)
  - Headache [Unknown]
  - Contusion [Unknown]
  - Malaise [Unknown]
  - Pain in extremity [Unknown]
  - Platelet count decreased [Recovering/Resolving]
  - Pigmentation disorder [Unknown]
  - Depressed mood [Unknown]
